FAERS Safety Report 12783344 (Version 1)
Quarter: 2016Q3

REPORT INFORMATION
  Report Type: Spontaneous
  Country: ES (occurrence: ES)
  Receive Date: 20160927
  Receipt Date: 20160927
  Transmission Date: 20161109
  Serious: Yes (Other)
  Sender: FDA-Public Use
  Company Number: ES-APOTEX-2016AP011964

PATIENT
  Sex: Male

DRUGS (6)
  1. DIGOXIN. [Suspect]
     Active Substance: DIGOXIN
     Indication: SUPRAVENTRICULAR TACHYCARDIA
     Dosage: UNK
     Route: 064
  2. FLECAINIDA APOTEX COMPRIMIDOS EFG [Suspect]
     Active Substance: FLECAINIDE
     Indication: SUPRAVENTRICULAR TACHYCARDIA
     Dosage: UNK
     Route: 064
  3. FLECAINIDA APOTEX COMPRIMIDOS EFG [Suspect]
     Active Substance: FLECAINIDE
     Indication: HYDROPS FOETALIS
     Dosage: INCREASED
     Route: 064
  4. FLECAINIDA APOTEX COMPRIMIDOS EFG [Suspect]
     Active Substance: FLECAINIDE
     Dosage: UNK
     Route: 065
  5. DIGOXIN. [Suspect]
     Active Substance: DIGOXIN
     Indication: HYDROPS FOETALIS
     Dosage: UNK
     Route: 064
  6. DIGOXIN. [Suspect]
     Active Substance: DIGOXIN
     Dosage: UNK
     Route: 065

REACTIONS (7)
  - Premature baby [Unknown]
  - Condition aggravated [Unknown]
  - Ascites [Unknown]
  - Caesarean section [None]
  - Foetal exposure during pregnancy [Recovered/Resolved]
  - Neonatal tachycardia [Recovering/Resolving]
  - Electrocardiogram QRS complex prolonged [Recovering/Resolving]
